FAERS Safety Report 9905638 (Version 3)
Quarter: 2015Q3

REPORT INFORMATION
  Report Type: Spontaneous
  Country: US (occurrence: US)
  Receive Date: 20140218
  Receipt Date: 20150811
  Transmission Date: 20151125
  Serious: No
  Sender: FDA-Public Use
  Company Number: US-GILEAD-2012-0049014

PATIENT
  Age: 36 Year
  Sex: Male

DRUGS (3)
  1. LETAIRIS [Suspect]
     Active Substance: AMBRISENTAN
     Indication: PULMONARY HYPERTENSION
     Dosage: 10 MG, UNK
     Route: 048
     Dates: start: 20111208
  2. EPOPROSTENOL. [Concomitant]
     Active Substance: EPOPROSTENOL
  3. LETAIRIS [Suspect]
     Active Substance: AMBRISENTAN
     Indication: SYSTEMIC LUPUS ERYTHEMATOSUS
     Dosage: 5 MG, UNK
     Route: 048

REACTIONS (9)
  - Facial pain [Unknown]
  - Eye irritation [Unknown]
  - Depression [Unknown]
  - Paraesthesia [Unknown]
  - Panic attack [Unknown]
  - Rash [Unknown]
  - Eye swelling [Unknown]
  - Flushing [Unknown]
  - Pain [Unknown]
